FAERS Safety Report 4666316-9 (Version None)
Quarter: 2005Q2

REPORT INFORMATION
  Report Type: 
  Country: None (occurrence: None)
  Receive Date: 20050518
  Receipt Date: 20050505
  Transmission Date: 20051028
  Serious: Yes (Other)
  Sender: FDA-Public Use
  Company Number: 2005070521

PATIENT
  Sex: Female

DRUGS (2)
  1. CLINDAMYCIN HYDROCHLORIDE [Suspect]
     Indication: NEOPLASM SKIN
     Dosage: 1200 MG (300 MG, 1 IN 4 D), ORAL
     Route: 048
  2. ANTITHYROID PREPARATIONS (ANTITHYROID PREPARATIONS) [Concomitant]

REACTIONS (3)
  - COLITIS [None]
  - DIARRHOEA [None]
  - TACHYCARDIA [None]
